FAERS Safety Report 10227595 (Version 2)
Quarter: 2014Q2

REPORT INFORMATION
  Report Type: Spontaneous
  Country: US (occurrence: None)
  Receive Date: 20140606
  Receipt Date: 20140617
  Transmission Date: 20141212
  Serious: Yes (Death)
  Sender: FDA-Public Use
  Company Number: QSC-2014-0332

PATIENT
  Age: 62 Year
  Sex: Male

DRUGS (1)
  1. H.P. ACTHAR GEL (ADRENOCORTICOTROPIC HORMONE) GEL FOR INJECTION, 80U/ML [Suspect]
     Indication: POLYMYOSITIS
     Dosage: 80 UNITS
     Route: 030
     Dates: start: 201402, end: 201404

REACTIONS (1)
  - Cardiac arrest [None]
